FAERS Safety Report 16812275 (Version 2)
Quarter: 2020Q1

REPORT INFORMATION
  Report Type: Spontaneous
  Country: FR (occurrence: FR)
  Receive Date: 20190916
  Receipt Date: 20200131
  Transmission Date: 20200409
  Serious: Yes (Other)
  Sender: FDA-Public Use
  Company Number: FR-MYLANLABS-2019M1085889

PATIENT
  Age: 31 Year
  Sex: Female

DRUGS (2)
  1. TRAMADOL. [Suspect]
     Active Substance: TRAMADOL
     Indication: PAIN
     Dosage: 50 MG, QD
     Route: 065
  2. CYMBALTA [Suspect]
     Active Substance: DULOXETINE HYDROCHLORIDE
     Indication: DEPRESSION
     Dosage: 60 MG, QD
     Route: 065

REACTIONS (23)
  - Irritability [Unknown]
  - Asthenia [Unknown]
  - Muscle contractions involuntary [Unknown]
  - Depressed mood [Unknown]
  - Dyspnoea [Unknown]
  - Tinnitus [Unknown]
  - Heart rate abnormal [Unknown]
  - Fatigue [Unknown]
  - Pain [Unknown]
  - Malaise [Unknown]
  - Confusional state [Unknown]
  - Cold sweat [Unknown]
  - Insomnia [Unknown]
  - Haematoma [Unknown]
  - Condition aggravated [Unknown]
  - Drug ineffective [Unknown]
  - Dysstasia [Unknown]
  - Blood pressure abnormal [Unknown]
  - Syncope [Unknown]
  - Rash [Unknown]
  - Crying [Unknown]
  - Muscle spasms [Unknown]
  - Anxiety [Unknown]
